FAERS Safety Report 17456233 (Version 8)
Quarter: 2021Q2

REPORT INFORMATION
  Report Type: Report from Study
  Country: KR (occurrence: KR)
  Receive Date: 20200225
  Receipt Date: 20210625
  Transmission Date: 20210716
  Serious: Yes (Death, Life-Threatening, Hospitalization)
  Sender: FDA-Public Use
  Company Number: KR-ASTELLAS-2019US046555

PATIENT
  Age: 75 Year
  Sex: Male

DRUGS (6)
  1. ASG?22CE [Suspect]
     Active Substance: ENFORTUMAB VEDOTIN
     Indication: TRANSITIONAL CELL CARCINOMA
     Dosage: 1.25 MG/KG, QCYCLE
     Route: 042
     Dates: start: 20190711, end: 20191111
  2. ASG?22CE [Suspect]
     Active Substance: ENFORTUMAB VEDOTIN
     Dosage: 1.25 MG/KG, CYCLIC (QCYCLE ON DAYS 1, 8 AND 15 OF EVERY 28?DAY CYCLE)
     Route: 042
     Dates: end: 20200106
  3. GABAPENTIN. [Concomitant]
     Active Substance: GABAPENTIN
     Indication: PERIPHERAL SENSORY NEUROPATHY
     Route: 065
     Dates: start: 20191028
  4. CLOBETASOL PROPIONATE. [Concomitant]
     Active Substance: CLOBETASOL PROPIONATE
     Indication: PRURITUS
     Dosage: UNK UNK, UNKNOWN FREQ.
     Route: 065
     Dates: start: 20190725
  5. BEPOTASTINE [Concomitant]
     Active Substance: BEPOTASTINE
     Indication: PRURITUS
     Route: 065
     Dates: start: 20190805
  6. PREDNISOLONE VALEROACETATE [Concomitant]
     Indication: PRURITUS
     Dosage: UNK UNK, UNKNOWN FREQ.
     Route: 065
     Dates: start: 20190812

REACTIONS (1)
  - Pneumonitis [Fatal]

NARRATIVE: CASE EVENT DATE: 20191119
